FAERS Safety Report 19849897 (Version 1)
Quarter: 2021Q3

REPORT INFORMATION
  Report Type: Spontaneous
  Country: US (occurrence: US)
  Receive Date: 20210918
  Receipt Date: 20210918
  Transmission Date: 20211014
  Serious: No
  Sender: FDA-Public Use
  Company Number: US-ORGANON-O2109USA000942

PATIENT
  Age: 32 Year
  Sex: Female

DRUGS (1)
  1. GANIRELIX ACETATE INJECTION [Suspect]
     Active Substance: GANIRELIX ACETATE
     Indication: INFERTILITY
     Dosage: 250 MICROGRAM, QD
     Route: 058
     Dates: start: 20210828

REACTIONS (4)
  - Injection site urticaria [Unknown]
  - Dysphagia [Unknown]
  - Hypersensitivity [Unknown]
  - Throat tightness [Unknown]

NARRATIVE: CASE EVENT DATE: 20210909
